FAERS Safety Report 21599248 (Version 1)
Quarter: 2022Q4

REPORT INFORMATION
  Report Type: Spontaneous
  Country: US (occurrence: None)
  Receive Date: 20221114
  Receipt Date: 20221114
  Transmission Date: 20230113
  Serious: Yes (Death, Hospitalization)
  Sender: FDA-Public Use
  Company Number: None

PATIENT
  Age: 83 Year
  Sex: Male

DRUGS (1)
  1. OFEV [Suspect]
     Active Substance: NINTEDANIB
     Indication: Idiopathic pulmonary fibrosis
     Dosage: FREQUENCY : TWICE A DAY;?
     Route: 048
     Dates: start: 20220526, end: 20221026

REACTIONS (11)
  - Dyspnoea [None]
  - Chest pain [None]
  - Dyspnoea at rest [None]
  - Cough [None]
  - Diarrhoea [None]
  - Decreased appetite [None]
  - Weight decreased [None]
  - Asthenia [None]
  - Drug ineffective [None]
  - Interstitial lung disease [None]
  - Disease progression [None]

NARRATIVE: CASE EVENT DATE: 20221031
